FAERS Safety Report 5246167-7 (Version None)
Quarter: 2007Q1

REPORT INFORMATION
  Report Type: 
  Country: None (occurrence: None)
  Receive Date: 20070220
  Receipt Date: 20070205
  Transmission Date: 20070707
  Serious: Yes (Hospitalization)
  Sender: FDA-Public Use
  Company Number: MEDI-0004591

PATIENT
  Age: 2 Month
  Weight: 2.75 kg

DRUGS (3)
  1. SYNAGIS [Suspect]
     Indication: ANTIVIRAL PROPHYLAXIS
     Dosage: 40 MG, 1 IN 30 D, INTRAMUSCULAR 30 MG, 1 IN 30 D, INTRAMUSCULAR 80 MG, 1 IN 30 D, INTRAMUSCULAR
     Route: 030
     Dates: start: 20051229, end: 20060130
  2. SYNAGIS [Suspect]
     Indication: ANTIVIRAL PROPHYLAXIS
     Dosage: 40 MG, 1 IN 30 D, INTRAMUSCULAR 30 MG, 1 IN 30 D, INTRAMUSCULAR 80 MG, 1 IN 30 D, INTRAMUSCULAR
     Route: 030
     Dates: start: 20060403, end: 20060403
  3. SYNAGIS [Suspect]
     Indication: ANTIVIRAL PROPHYLAXIS
     Dosage: 40 MG, 1 IN 30 D, INTRAMUSCULAR 30 MG, 1 IN 30 D, INTRAMUSCULAR 80 MG, 1 IN 30 D, INTRAMUSCULAR
     Route: 030
     Dates: start: 20051229

REACTIONS (3)
  - ASTHMA [None]
  - HAEMOPHILUS INFECTION [None]
  - LUNG DISORDER [None]
